FAERS Safety Report 9150080 (Version 1)
Quarter: 2013Q1

REPORT INFORMATION
  Report Type: Spontaneous
  Country: US (occurrence: None)
  Receive Date: 20130228
  Receipt Date: 20130228
  Transmission Date: 20140127
  Serious: Yes (Hospitalization)
  Sender: FDA-Public Use
  Company Number: None

PATIENT
  Age: 65 Year
  Sex: Male
  Weight: 88.6 kg

DRUGS (1)
  1. BUPROPION [Suspect]
     Indication: DEPRESSION
     Route: 048
     Dates: start: 20121217, end: 20130111

REACTIONS (6)
  - Hallucination [None]
  - Parkinsonism [None]
  - Salivary hypersecretion [None]
  - Gait disturbance [None]
  - Delirium [None]
  - Mental status changes [None]
